FAERS Safety Report 8103844-8 (Version None)
Quarter: 2012Q1

REPORT INFORMATION
  Report Type: 
  Country: None (occurrence: None)
  Receive Date: 20120201
  Receipt Date: 20120119
  Transmission Date: 20120608
  Serious: Yes (Hospitalization, Other)
  Sender: FDA-Public Use
  Company Number: PHHY2012AU001493

PATIENT
  Sex: Male
  Weight: 74.1 kg

DRUGS (3)
  1. DIAZEPAM [Concomitant]
  2. CLOZARIL [Suspect]
     Indication: SCHIZOPHRENIA
     Dosage: 200 MG
     Dates: start: 20111222, end: 20120108
  3. CHLORPROMAZINE HCL [Concomitant]

REACTIONS (9)
  - HYPERKINETIC HEART SYNDROME [None]
  - MYOCARDITIS [None]
  - BLOOD CREATINE PHOSPHOKINASE INCREASED [None]
  - MALAISE [None]
  - SEDATION [None]
  - TACHYCARDIA [None]
  - TROPONIN INCREASED [None]
  - PULMONARY OEDEMA [None]
  - PYREXIA [None]
